FAERS Safety Report 10059580 (Version 1)
Quarter: 2014Q2

REPORT INFORMATION
  Report Type: Spontaneous
  Country: US (occurrence: None)
  Receive Date: 20140402
  Receipt Date: 20140402
  Transmission Date: 20141212
  Serious: Yes (Death)
  Sender: FDA-Public Use
  Company Number: INS201403-000026

PATIENT
  Age: 60 Year
  Sex: Female

DRUGS (1)
  1. SUBSYS [Suspect]
     Indication: CANCER PAIN

REACTIONS (1)
  - Death [None]
